FAERS Safety Report 4654988-4 (Version None)
Quarter: 2005Q2

REPORT INFORMATION
  Report Type: 
  Country: None (occurrence: None)
  Receive Date: 20050506
  Receipt Date: 20040213
  Transmission Date: 20051028
  Serious: Yes (Other)
  Sender: FDA-Public Use
  Company Number: PHFR2004GB01028

PATIENT
  Age: 40 Year
  Sex: Male

DRUGS (5)
  1. CLOZARIL [Suspect]
     Indication: SCHIZOPHRENIA
     Dosage: UNK, UNK
     Route: 048
     Dates: start: 20020202
  2. DISULFIRAM [Concomitant]
     Route: 065
  3. ANTIDEPRESSANTS [Concomitant]
     Route: 065
  4. CIPRAMIL [Concomitant]
     Indication: DEPRESSION
     Dosage: 30 MG, QD
     Route: 048
     Dates: start: 20031001
  5. ACAMPROSATE [Concomitant]
     Indication: ALCOHOL DETOXIFICATION
     Dosage: 666MG/DAY
     Route: 048
     Dates: start: 20020701

REACTIONS (5)
  - ANXIETY [None]
  - DYSPHEMIA [None]
  - HYPERHIDROSIS [None]
  - MYOCLONUS [None]
  - TIC [None]
